FAERS Safety Report 21927795 (Version 1)
Quarter: 2023Q1

REPORT INFORMATION
  Report Type: Spontaneous
  Country: CA (occurrence: CA)
  Receive Date: 20230130
  Receipt Date: 20230130
  Transmission Date: 20230418
  Serious: Yes (Life-Threatening, Hospitalization, Other)
  Sender: FDA-Public Use
  Company Number: CA-BRISTOL-MYERS SQUIBB COMPANY-2023-013588

PATIENT
  Age: 63 Year
  Sex: Male

DRUGS (2)
  1. OPDIVO [Suspect]
     Active Substance: NIVOLUMAB
     Indication: Product used for unknown indication
     Dosage: 100 MG/10 ML SINGLE USE VIAL
  2. IPILIMUMAB [Suspect]
     Active Substance: IPILIMUMAB
     Indication: Product used for unknown indication

REACTIONS (1)
  - SJS-TEN overlap [Unknown]
